FAERS Safety Report 8602014-4 (Version None)
Quarter: 2012Q3

REPORT INFORMATION
  Report Type: 
  Country: None (occurrence: None)
  Receive Date: 20120817
  Receipt Date: 20120815
  Transmission Date: 20120928
  Serious: Yes (Hospitalization, Other)
  Sender: FDA-Public Use
  Company Number: US-AMGEN-STX267833

PATIENT
  Age: 48 Year
  Sex: Male

DRUGS (6)
  1. ALEVE [Concomitant]
     Dosage: UNK
  2. LODINE [Concomitant]
     Dosage: UNK
  3. TYLENOL (CAPLET) [Concomitant]
     Dosage: UNK
  4. ENBREL [Suspect]
     Indication: PSORIATIC ARTHROPATHY
     Dosage: 50 MG, QWK
     Route: 058
     Dates: start: 20040401
  5. ENBREL [Suspect]
     Indication: PSORIASIS
  6. NSAID [Concomitant]
     Dosage: UNK
     Route: 065

REACTIONS (16)
  - ABDOMINAL PAIN LOWER [None]
  - PSORIATIC ARTHROPATHY [None]
  - UPPER RESPIRATORY TRACT INFECTION [None]
  - SINUSITIS [None]
  - HEADACHE [None]
  - PAIN IN EXTREMITY [None]
  - GASTROENTERITIS VIRAL [None]
  - INTESTINAL OBSTRUCTION [None]
  - LYMPHADENITIS [None]
  - FLUSHING [None]
  - VIRAL INFECTION [None]
  - HERNIA [None]
  - ARTHRALGIA [None]
  - CONSTIPATION [None]
  - GALLBLADDER OPERATION [None]
  - LIVER FUNCTION TEST ABNORMAL [None]
